FAERS Safety Report 21998264 (Version 1)
Quarter: 2023Q1

REPORT INFORMATION
  Report Type: Spontaneous
  Country: NO (occurrence: NO)
  Receive Date: 20230216
  Receipt Date: 20230216
  Transmission Date: 20230417
  Serious: Yes (Other)
  Sender: FDA-Public Use
  Company Number: NO-SA-SAC20230214001629

PATIENT

DRUGS (1)
  1. LEMTRADA [Suspect]
     Active Substance: ALEMTUZUMAB
     Indication: Prolymphocytic leukaemia
     Dosage: 30 MG, TIW
     Route: 065

REACTIONS (1)
  - Leukaemia recurrent [Unknown]
